FAERS Safety Report 6015843-0 (Version None)
Quarter: 2008Q4

REPORT INFORMATION
  Report Type: 
  Country: None (occurrence: None)
  Receive Date: 20081222
  Receipt Date: 20081219
  Transmission Date: 20090506
  Serious: Yes (Hospitalization)
  Sender: FDA-Public Use
  Company Number: A0759698A

PATIENT
  Sex: Male

DRUGS (1)
  1. LOVAZA [Suspect]
     Indication: DRUG USE FOR UNKNOWN INDICATION
     Dosage: 1G TWICE PER DAY
     Route: 048
     Dates: start: 20081113

REACTIONS (5)
  - ABNORMAL FAECES [None]
  - BEZOAR [None]
  - FAECES DISCOLOURED [None]
  - INTESTINAL FUNCTIONAL DISORDER [None]
  - SMALL INTESTINAL OBSTRUCTION [None]
